FAERS Safety Report 8066111-7 (Version None)
Quarter: 2012Q1

REPORT INFORMATION
  Report Type: 
  Country: None (occurrence: None)
  Receive Date: 20120124
  Receipt Date: 20120110
  Transmission Date: 20120608
  Serious: Yes (Death, Other)
  Sender: FDA-Public Use
  Company Number: BE-CELGENEUS-013-21880-11021804

PATIENT
  Age: 80 Year

DRUGS (12)
  1. SINTROM [Concomitant]
     Route: 065
  2. BUMETANIDE [Concomitant]
     Route: 065
  3. SPIRONOLACTONE [Concomitant]
     Route: 065
  4. CRESTOR [Concomitant]
     Route: 065
  5. CLOPIDOGREL [Concomitant]
     Route: 065
  6. OMEPRAZOLE [Concomitant]
     Route: 065
  7. SYMBICORT [Concomitant]
     Route: 065
  8. AMLODIPINE [Concomitant]
     Route: 065
  9. CODEINE SULFATE [Concomitant]
     Route: 065
  10. ZOLPIDEM [Concomitant]
     Route: 065
  11. REVLIMID [Suspect]
     Dosage: 10 MILLIGRAM
     Route: 048
     Dates: start: 20100820, end: 20101015
  12. SOTALOL HCL [Concomitant]
     Route: 065

REACTIONS (3)
  - NO THERAPEUTIC RESPONSE [None]
  - MYELODYSPLASTIC SYNDROME [None]
  - THROMBOCYTOPENIA [None]
